FAERS Safety Report 11291437 (Version 1)
Quarter: 2015Q3

REPORT INFORMATION
  Report Type: Spontaneous
  Country: US (occurrence: US)
  Receive Date: 20150722
  Receipt Date: 20150722
  Transmission Date: 20151125
  Serious: No
  Sender: FDA-Public Use
  Company Number: US-UNITED THERAPEUTICS-UNT-2015-002224

PATIENT
  Sex: Female
  Weight: 97.51 kg

DRUGS (7)
  1. REMODULIN [Suspect]
     Active Substance: TREPROSTINIL
     Dosage: 0.089 ?G/KG/MIN, CONTINUING
     Route: 058
     Dates: start: 20121015
  2. REMODULIN [Suspect]
     Active Substance: TREPROSTINIL
     Dosage: 0.089 ?G/KG/MIN, UNK
     Route: 058
  3. REMODULIN [Suspect]
     Active Substance: TREPROSTINIL
     Indication: PULMONARY ARTERIAL HYPERTENSION
     Dosage: 0.089 ?G/KG/MIN, CONTINUING
     Route: 058
     Dates: start: 20120910
  4. LETAIRIS [Concomitant]
     Active Substance: AMBRISENTAN
     Indication: PRODUCT USED FOR UNKNOWN INDICATION
  5. ADEMPAS [Suspect]
     Active Substance: RIOCIGUAT
     Indication: PRODUCT USED FOR UNKNOWN INDICATION
     Dosage: UNK
     Route: 065
     Dates: start: 20150302
  6. SILDENAFIL. [Concomitant]
     Active Substance: SILDENAFIL
     Indication: PRODUCT USED FOR UNKNOWN INDICATION
  7. REMODULIN [Suspect]
     Active Substance: TREPROSTINIL
     Dosage: 0.101 ?G/KG/MIN, CONTINUING
     Route: 058
     Dates: start: 20120927

REACTIONS (13)
  - Fatigue [Unknown]
  - Flushing [Recovered/Resolved]
  - Dizziness [Unknown]
  - Therapy cessation [Unknown]
  - Nausea [Unknown]
  - Vomiting [Unknown]
  - Overdose [Unknown]
  - Back pain [Unknown]
  - Asthenia [Unknown]
  - Decreased appetite [Unknown]
  - Headache [Unknown]
  - Device issue [Unknown]
  - Dyspepsia [Unknown]
